FAERS Safety Report 7436634-X (Version None)
Quarter: 2011Q2

REPORT INFORMATION
  Report Type: 
  Country: None (occurrence: None)
  Receive Date: 20110426
  Receipt Date: 20110412
  Transmission Date: 20111010
  Serious: Yes (Life-Threatening, Hospitalization, Other)
  Sender: FDA-Public Use
  Company Number: GB-RANBAXY-2011R1-43706

PATIENT
  Age: 37 Year
  Sex: Male
  Weight: 69 kg

DRUGS (3)
  1. OXYTETRACYCLINE [Suspect]
     Indication: ACNE
     Dosage: 250 MG, BID
     Route: 048
     Dates: start: 19890101, end: 19940101
  2. METRONIDAZOLE [Concomitant]
     Indication: DIARRHOEA
     Dosage: UNK
     Route: 048
     Dates: start: 20011001
  3. MINOCYCLINE [Suspect]
     Indication: ACNE
     Dosage: 100 MG, 1/1 DAYS
     Route: 048
     Dates: start: 19940101, end: 20010101

REACTIONS (5)
  - HEPATIC CIRRHOSIS [None]
  - PORTAL HYPERTENSION [None]
  - VENOOCCLUSIVE LIVER DISEASE [None]
  - ASCITES [None]
  - VARICOSE VEIN [None]
